FAERS Safety Report 25110940 (Version 3)
Quarter: 2025Q2

REPORT INFORMATION
  Report Type: Spontaneous
  Country: DE (occurrence: DE)
  Receive Date: 20250324
  Receipt Date: 20250401
  Transmission Date: 20250716
  Serious: Yes (Hospitalization)
  Sender: CELLTRION
  Company Number: DE-CELLTRION INC.-2025DE007975

PATIENT

DRUGS (42)
  1. INFLIXIMAB [Suspect]
     Active Substance: INFLIXIMAB
     Indication: Rheumatoid arthritis
     Dosage: 120 MG, EVERY TWO WEEKS
     Route: 058
     Dates: start: 20231016
  2. INFLIXIMAB [Suspect]
     Active Substance: INFLIXIMAB
     Dosage: 120 MG, EVERY TWO WEEKS
     Route: 058
     Dates: start: 20231023
  3. INFLIXIMAB [Suspect]
     Active Substance: INFLIXIMAB
     Dosage: 120 MG, EVERY TWO WEEKS
     Route: 058
     Dates: start: 20231030
  4. INFLIXIMAB [Suspect]
     Active Substance: INFLIXIMAB
     Dosage: 120 MG, EVERY TWO WEEKS
     Route: 058
     Dates: start: 20231106
  5. INFLIXIMAB [Suspect]
     Active Substance: INFLIXIMAB
     Dosage: 120 MG, EVERY TWO WEEKS
     Route: 058
     Dates: start: 20231113
  6. INFLIXIMAB [Suspect]
     Active Substance: INFLIXIMAB
     Dosage: 120 MG, EVERY TWO WEEKS
     Route: 058
     Dates: start: 20231127
  7. INFLIXIMAB [Suspect]
     Active Substance: INFLIXIMAB
     Dosage: 120 MG, EVERY TWO WEEKS
     Route: 058
     Dates: start: 20231211
  8. INFLIXIMAB [Suspect]
     Active Substance: INFLIXIMAB
     Dosage: 120 MG, EVERY TWO WEEKS
     Route: 058
     Dates: start: 20231225
  9. INFLIXIMAB [Suspect]
     Active Substance: INFLIXIMAB
     Dosage: 120 MG, EVERY TWO WEEKS
     Route: 058
     Dates: start: 20240108
  10. INFLIXIMAB [Suspect]
     Active Substance: INFLIXIMAB
     Dosage: 120 MG, EVERY TWO WEEKS
     Route: 058
     Dates: start: 20240304
  11. INFLIXIMAB [Suspect]
     Active Substance: INFLIXIMAB
     Dosage: 120 MG, EVERY TWO WEEKS
     Route: 058
     Dates: start: 20240122
  12. INFLIXIMAB [Suspect]
     Active Substance: INFLIXIMAB
     Dosage: 120 MG, EVERY TWO WEEKS
     Route: 058
     Dates: start: 20240205
  13. INFLIXIMAB [Suspect]
     Active Substance: INFLIXIMAB
     Dosage: 120 MG, EVERY TWO WEEKS
     Route: 058
     Dates: start: 20240219
  14. INFLIXIMAB [Suspect]
     Active Substance: INFLIXIMAB
     Dosage: 120 MG, EVERY TWO WEEKS
     Route: 058
     Dates: start: 20240318
  15. INFLIXIMAB [Suspect]
     Active Substance: INFLIXIMAB
     Dosage: 120 MG, EVERY TWO WEEKS
     Route: 058
     Dates: start: 20240401
  16. INFLIXIMAB [Suspect]
     Active Substance: INFLIXIMAB
     Dosage: 120 MG, EVERY TWO WEEKS
     Route: 058
     Dates: start: 20240415
  17. INFLIXIMAB [Suspect]
     Active Substance: INFLIXIMAB
     Dosage: 120 MG, EVERY TWO WEEKS
     Route: 058
     Dates: start: 20240429
  18. INFLIXIMAB [Suspect]
     Active Substance: INFLIXIMAB
     Dosage: 120 MG, EVERY TWO WEEKS
     Route: 058
     Dates: start: 20240513
  19. INFLIXIMAB [Suspect]
     Active Substance: INFLIXIMAB
     Dosage: 120 MG, EVERY TWO WEEKS
     Route: 058
     Dates: start: 20240527
  20. INFLIXIMAB [Suspect]
     Active Substance: INFLIXIMAB
     Dosage: 120 MG, EVERY TWO WEEKS
     Route: 058
     Dates: start: 20240610
  21. INFLIXIMAB [Suspect]
     Active Substance: INFLIXIMAB
     Dosage: 120 MG, EVERY TWO WEEKS
     Route: 058
     Dates: start: 20240624
  22. INFLIXIMAB [Suspect]
     Active Substance: INFLIXIMAB
     Dosage: 120 MG, EVERY TWO WEEKS
     Route: 058
     Dates: start: 20240708
  23. INFLIXIMAB [Suspect]
     Active Substance: INFLIXIMAB
     Dosage: 120 MG, EVERY TWO WEEKS
     Route: 058
     Dates: start: 20240722
  24. INFLIXIMAB [Suspect]
     Active Substance: INFLIXIMAB
     Dosage: 120 MG, EVERY TWO WEEKS
     Route: 058
     Dates: start: 20240805
  25. INFLIXIMAB [Suspect]
     Active Substance: INFLIXIMAB
     Dosage: 120 MG, EVERY TWO WEEKS
     Route: 058
     Dates: start: 20240819
  26. INFLIXIMAB [Suspect]
     Active Substance: INFLIXIMAB
     Dosage: 120 MG, EVERY TWO WEEKS
     Route: 058
     Dates: start: 20240902
  27. INFLIXIMAB [Suspect]
     Active Substance: INFLIXIMAB
     Dosage: 120 MG, EVERY TWO WEEKS
     Route: 058
     Dates: start: 20240916
  28. INFLIXIMAB [Suspect]
     Active Substance: INFLIXIMAB
     Dosage: 120 MG, EVERY TWO WEEKS
     Route: 058
     Dates: start: 20241008
  29. INFLIXIMAB [Suspect]
     Active Substance: INFLIXIMAB
     Dosage: 120 MG, EVERY TWO WEEKS
     Route: 058
     Dates: start: 20241022
  30. INFLIXIMAB [Suspect]
     Active Substance: INFLIXIMAB
     Dosage: 120 MG, EVERY TWO WEEKS
     Route: 058
     Dates: start: 20241105
  31. INFLIXIMAB [Suspect]
     Active Substance: INFLIXIMAB
     Dosage: 120 MG, EVERY TWO WEEKS
     Route: 058
     Dates: start: 20241119
  32. INFLIXIMAB [Suspect]
     Active Substance: INFLIXIMAB
     Dosage: 120 MG, EVERY TWO WEEKS
     Route: 058
     Dates: start: 20241203
  33. INFLIXIMAB [Suspect]
     Active Substance: INFLIXIMAB
     Dosage: 120 MG, EVERY TWO WEEKS
     Route: 058
     Dates: start: 20241217
  34. INFLIXIMAB [Suspect]
     Active Substance: INFLIXIMAB
     Dosage: 120 MG, EVERY TWO WEEKS
     Route: 058
     Dates: start: 20241231
  35. INFLIXIMAB [Suspect]
     Active Substance: INFLIXIMAB
     Dosage: 120 MG, EVERY TWO WEEKS
     Route: 058
     Dates: start: 20250114
  36. INFLIXIMAB [Suspect]
     Active Substance: INFLIXIMAB
     Dosage: 120 MG, EVERY TWO WEEKS
     Route: 058
     Dates: start: 20250128
  37. INFLIXIMAB [Suspect]
     Active Substance: INFLIXIMAB
     Dosage: 120 MG, EVERY TWO WEEKS
     Route: 058
     Dates: start: 20250211
  38. INFLIXIMAB [Suspect]
     Active Substance: INFLIXIMAB
     Dosage: 120 MG, EVERY TWO WEEKS
     Route: 058
     Dates: start: 20250225
  39. INFLIXIMAB [Suspect]
     Active Substance: INFLIXIMAB
     Dosage: 120 MG, EVERY TWO WEEKS
     Route: 058
     Dates: start: 20250304
  40. PREDNISOLONE [Concomitant]
     Active Substance: PREDNISOLONE
     Indication: Rheumatoid arthritis
     Route: 048
     Dates: start: 20230911
  41. METHOTREXATE [Concomitant]
     Active Substance: METHOTREXATE
     Indication: Rheumatoid arthritis
     Dosage: 17.5 MG, ONCE PER WEEK
     Route: 048
     Dates: start: 202209
  42. FOLIC ACID [Concomitant]
     Active Substance: FOLIC ACID
     Indication: Rheumatoid arthritis
     Dosage: 5 MG, ONCE PER WEEK
     Route: 048
     Dates: start: 2016

REACTIONS (1)
  - Bundle branch block left [Recovered/Resolved]

NARRATIVE: CASE EVENT DATE: 20250217
